FAERS Safety Report 22396869 (Version 1)
Quarter: 2023Q2

REPORT INFORMATION
  Report Type: Report from Study
  Country: US (occurrence: US)
  Receive Date: 20230601
  Receipt Date: 20230601
  Transmission Date: 20230722
  Serious: Yes (Hospitalization)
  Sender: FDA-Public Use
  Company Number: US-ABBVIE-5186614

PATIENT
  Age: 28 Year
  Sex: Male

DRUGS (1)
  1. HUMIRA [Suspect]
     Active Substance: ADALIMUMAB
     Indication: Rheumatoid arthritis
     Dosage: CITRATE FREE
     Route: 058

REACTIONS (5)
  - Anxiety [Recovered/Resolved]
  - Nervousness [Not Recovered/Not Resolved]
  - Paraesthesia [Recovered/Resolved]
  - Blood magnesium increased [Unknown]
  - Blood sodium increased [Unknown]

NARRATIVE: CASE EVENT DATE: 20230528
